FAERS Safety Report 4545558-7 (Version None)
Quarter: 2005Q1

REPORT INFORMATION
  Report Type: 
  Country: None (occurrence: None)
  Receive Date: 20050103
  Receipt Date: 20041210
  Transmission Date: 20050727
  Serious: Yes (Other)
  Sender: FDA-Public Use
  Company Number: USA041079980

PATIENT
  Age: 76 Year
  Sex: Female
  Weight: 64 kg

DRUGS (7)
  1. FORTEO [Suspect]
     Indication: OSTEOPOROSIS
     Dosage: 20 UG/1 DAY
     Dates: start: 20040506, end: 20041001
  2. CALCIUM GLUCONATE [Concomitant]
  3. PREDNISONE [Concomitant]
  4. METHOTREXATE [Concomitant]
  5. NAPROSYN (NAPROXEN MEPHA) [Concomitant]
  6. TRAMADOL HCL [Concomitant]
  7. VICODINE [Concomitant]

REACTIONS (18)
  - ABASIA [None]
  - ALANINE AMINOTRANSFERASE INCREASED [None]
  - ARTHRALGIA [None]
  - ASPARTATE AMINOTRANSFERASE INCREASED [None]
  - BACK PAIN [None]
  - BLOOD GLUCOSE INCREASED [None]
  - CONDITION AGGRAVATED [None]
  - CONSTIPATION [None]
  - DYSSTASIA [None]
  - ECCHYMOSIS [None]
  - FALL [None]
  - FRACTURE DELAYED UNION [None]
  - INTERVERTEBRAL DISC PROTRUSION [None]
  - PAIN IN EXTREMITY [None]
  - PHARMACEUTICAL PRODUCT COMPLAINT [None]
  - RED BLOOD CELL SEDIMENTATION RATE INCREASED [None]
  - SPINAL COMPRESSION FRACTURE [None]
  - SPONDYLOLISTHESIS [None]
